FAERS Safety Report 11436460 (Version 1)
Quarter: 2015Q3

REPORT INFORMATION
  Report Type: Spontaneous
  Country: US (occurrence: US)
  Receive Date: 20150821
  Receipt Date: 20150821
  Transmission Date: 20151125
  Serious: No
  Sender: FDA-Public Use
  Company Number: US-ELI_LILLY_AND_COMPANY-US201405009011

PATIENT
  Age: 63 Year
  Sex: Male

DRUGS (3)
  1. CIALIS [Suspect]
     Active Substance: TADALAFIL
     Indication: ERECTILE DYSFUNCTION
     Dosage: 5 MG, QD
     Route: 065
     Dates: start: 201404
  2. ACYCLOVIR                          /00587301/ [Concomitant]
     Active Substance: ACYCLOVIR
     Indication: HERPES ZOSTER
  3. CIALIS [Suspect]
     Active Substance: TADALAFIL
     Indication: POLLAKIURIA
     Dosage: 2.5 MG, QD
     Route: 065

REACTIONS (4)
  - Intentional product misuse [Unknown]
  - Lethargy [Unknown]
  - Myalgia [Not Recovered/Not Resolved]
  - Irritability [Unknown]
